FAERS Safety Report 9451061 (Version 1)
Quarter: 2013Q3

REPORT INFORMATION
  Report Type: Spontaneous
  Country: CA (occurrence: CA)
  Receive Date: 20130809
  Receipt Date: 20130809
  Transmission Date: 20140515
  Serious: Yes (Other)
  Sender: FDA-Public Use
  Company Number: CA-ROXANE LABORATORIES, INC.-2013-RO-01316RO

PATIENT
  Age: 60 Year
  Sex: Female

DRUGS (1)
  1. DEXAMETHASONE [Suspect]
     Indication: CHONDROCALCINOSIS PYROPHOSPHATE
     Dosage: 8 MG
     Route: 048

REACTIONS (2)
  - Insomnia [Unknown]
  - Anxiety [Unknown]
